FAERS Safety Report 24210768 (Version 1)
Quarter: 2024Q3

REPORT INFORMATION
  Report Type: Spontaneous
  Country: IT (occurrence: IT)
  Receive Date: 20240814
  Receipt Date: 20240814
  Transmission Date: 20241016
  Serious: Yes (Other)
  Sender: DR REDDYS
  Company Number: IT-BLG-LIT/ITA/24/0011768

PATIENT
  Age: 79 Year
  Sex: Male

DRUGS (14)
  1. BORTEZOMIB [Suspect]
     Active Substance: BORTEZOMIB
     Indication: Plasma cell myeloma
  2. LENALIDOMIDE [Suspect]
     Active Substance: LENALIDOMIDE
     Indication: Plasma cell myeloma
     Dosage: SECOND-LINE TREATMENT WITH CYCLES ( ON DAYS 1 TO 21 FOR EACH CYCLE)
     Route: 048
  3. LENALIDOMIDE [Suspect]
     Active Substance: LENALIDOMIDE
  4. DARATUMUMAB [Suspect]
     Active Substance: DARATUMUMAB
     Indication: Plasma cell myeloma
     Dosage: SECOND-LINE TREATMENT WITH CYCLES
     Route: 042
  5. DARATUMUMAB [Suspect]
     Active Substance: DARATUMUMAB
     Dosage: WEEKLY (ON DAYS 1, 8, 15, AND 22) FOR 8 WEEKS DURING CYCLES 1 AND 2, EVERY OTHER WEEK (ON DAYS 1 AND
     Route: 058
  6. DEXAMETHASONE [Suspect]
     Active Substance: DEXAMETHASONE
     Indication: Plasma cell myeloma
     Dosage: SECOND-LINE TREATMENT WITH CYCLES
     Route: 048
  7. MELPHALAN [Concomitant]
     Active Substance: MELPHALAN
     Indication: Plasma cell myeloma
     Dosage: FIRST-LINE TREATMENT CONSISTED OF 9 CYCLES
  8. ASPIRIN [Concomitant]
     Active Substance: ASPIRIN
     Indication: Product used for unknown indication
  9. ALLOPURINOL [Concomitant]
     Active Substance: ALLOPURINOL
     Indication: Product used for unknown indication
  10. METFORMIN [Concomitant]
     Active Substance: METFORMIN HYDROCHLORIDE
     Indication: Product used for unknown indication
  11. COTRIMOXAZOLE [Concomitant]
     Active Substance: SULFAMETHOXAZOLE\TRIMETHOPRIM
     Indication: Product used for unknown indication
  12. ACYCLOVIR [Concomitant]
     Active Substance: ACYCLOVIR
     Indication: Product used for unknown indication
  13. ZOLEDRONIC ACID [Concomitant]
     Active Substance: ZOLEDRONIC ACID
     Indication: Plasma cell myeloma
     Dosage: FIRST-LINE TREATMENT CONSISTED OF 9 CYCLES
  14. DEXAMETHASONE [Concomitant]
     Active Substance: DEXAMETHASONE
     Indication: Plasma cell myeloma
     Dosage: FIRST LINE TREATMENT

REACTIONS (9)
  - Drug ineffective [Unknown]
  - Neutropenia [Unknown]
  - Condition aggravated [Unknown]
  - Visceral leishmaniasis [Recovered/Resolved]
  - Anaemia [Recovered/Resolved]
  - Nausea [Unknown]
  - Decreased appetite [Unknown]
  - Fatigue [Unknown]
  - Splenomegaly [Recovered/Resolved]
